FAERS Safety Report 16831720 (Version 1)
Quarter: 2019Q3

REPORT INFORMATION
  Report Type: Report from Study
  Country: IT (occurrence: IT)
  Receive Date: 20190920
  Receipt Date: 20190920
  Transmission Date: 20191005
  Serious: Yes (Hospitalization)
  Sender: FDA-Public Use
  Company Number: IT-TEVA-2019-IT-1109968

PATIENT
  Age: 81 Year
  Sex: Female

DRUGS (6)
  1. LANSOPRAZOLE. [Concomitant]
     Active Substance: LANSOPRAZOLE
  2. EUTIROX [Concomitant]
     Active Substance: LEVOTHYROXINE SODIUM
  3. REPAGLINIDE. [Suspect]
     Active Substance: REPAGLINIDE
  4. PALEXIA [Concomitant]
     Active Substance: TAPENTADOL HYDROCHLORIDE
  5. LASIX [Concomitant]
     Active Substance: FUROSEMIDE
  6. ALLOPURINOL. [Concomitant]
     Active Substance: ALLOPURINOL

REACTIONS (2)
  - Dyspnoea [Unknown]
  - Arrhythmia [Unknown]

NARRATIVE: CASE EVENT DATE: 20190615
